FAERS Safety Report 6405075-6 (Version None)
Quarter: 2009Q4

REPORT INFORMATION
  Report Type: 
  Country: None (occurrence: None)
  Receive Date: 20091013
  Receipt Date: 20091001
  Transmission Date: 20100525
  Serious: Yes (Hospitalization, Other)
  Sender: FDA-Public Use
  Company Number: 230411J08CAN

PATIENT
  Sex: Female

DRUGS (3)
  1. REBIF [Suspect]
     Indication: RELAPSING-REMITTING MULTIPLE SCLEROSIS
     Dosage: 44 MCG, 3 IN 1 WEEKS
     Dates: start: 20010401
  2. IBUPROFEN [Concomitant]
  3. COTYLENOL [Concomitant]

REACTIONS (11)
  - CONVULSION [None]
  - DIARRHOEA [None]
  - EYE DISORDER [None]
  - FATIGUE [None]
  - HEADACHE [None]
  - INFLUENZA [None]
  - INJECTION SITE INDURATION [None]
  - INJECTION SITE PAIN [None]
  - INSOMNIA [None]
  - URINARY TRACT INFECTION [None]
  - VOMITING [None]
